FAERS Safety Report 9392725 (Version 2)
Quarter: 2013Q3

REPORT INFORMATION
  Report Type: Spontaneous
  Country: US (occurrence: US)
  Receive Date: 20130710
  Receipt Date: 20130722
  Transmission Date: 20140515
  Serious: Yes (Hospitalization)
  Sender: FDA-Public Use
  Company Number: US-JNJFOC-20130620355

PATIENT
  Age: 76 Year
  Sex: Female

DRUGS (4)
  1. XARELTO [Suspect]
     Indication: CEREBROVASCULAR ACCIDENT PROPHYLAXIS
     Route: 048
     Dates: start: 20130514, end: 20130514
  2. XARELTO [Suspect]
     Indication: ATRIAL FIBRILLATION
     Route: 048
     Dates: start: 20130514, end: 20130514
  3. ASPIRIN [Suspect]
     Indication: PRODUCT USED FOR UNKNOWN INDICATION
     Dosage: 81 (UNITS UNSPECIFIED)
     Route: 065
  4. LISINOPRIL [Concomitant]
     Route: 065

REACTIONS (4)
  - Oesophageal perforation [Recovered/Resolved]
  - Haematoma [Recovered/Resolved]
  - Haemoptysis [Unknown]
  - Inappropriate schedule of drug administration [Unknown]
